FAERS Safety Report 5126599-8 (Version None)
Quarter: 2006Q4

REPORT INFORMATION
  Report Type: 
  Country: None (occurrence: None)
  Receive Date: 20061012
  Receipt Date: 20061012
  Transmission Date: 20070319
  Serious: Yes (Hospitalization)
  Sender: FDA-Public Use
  Company Number: None

PATIENT
  Age: 71 Year
  Sex: Male

DRUGS (1)
  1. AVELOX [Suspect]
     Indication: PNEUMONIA
     Dosage: 400MG Q 24 H IV
     Route: 042
     Dates: start: 20060929, end: 20061001

REACTIONS (3)
  - ANGIONEUROTIC OEDEMA [None]
  - SKIN DISCOLOURATION [None]
  - TACHYCARDIA [None]
